FAERS Safety Report 8446143-7 (Version None)
Quarter: 2012Q2

REPORT INFORMATION
  Report Type: 
  Country: None (occurrence: None)
  Receive Date: 20120618
  Receipt Date: 20120612
  Transmission Date: 20120825
  Serious: Yes (Other)
  Sender: FDA-Public Use
  Company Number: US-PFIZER INC-2012104560

PATIENT

DRUGS (1)
  1. LYRICA [Suspect]
     Dosage: 75 MG, 4X/DAY (ONE TABLET)
     Route: 048

REACTIONS (1)
  - LIMB INJURY [None]
